FAERS Safety Report 12613380 (Version 1)
Quarter: 2016Q3

REPORT INFORMATION
  Report Type: Spontaneous
  Country: None (occurrence: None)
  Receive Date: 20160801
  Receipt Date: 20160801
  Transmission Date: 20161109
  Serious: No
  Sender: FDA-Public Use
  Company Number: None

PATIENT
  Sex: Female

DRUGS (1)
  1. NATURE^S CURE VANISHING CREAM HOMEOPATHIC NATURE^S CURE [Suspect]
     Active Substance: BENZOYL PEROXIDE

REACTIONS (2)
  - Hypersensitivity [None]
  - Erythema [None]

NARRATIVE: CASE EVENT DATE: 20160728
